FAERS Safety Report 7887714-6 (Version None)
Quarter: 2011Q4

REPORT INFORMATION
  Report Type: 
  Country: None (occurrence: None)
  Receive Date: 20111103
  Receipt Date: 20111026
  Transmission Date: 20120403
  Serious: Yes (Hospitalization)
  Sender: FDA-Public Use
  Company Number: ES-BRISTOL-MYERS SQUIBB COMPANY-16203788

PATIENT
  Age: 43 Year
  Sex: Female

DRUGS (4)
  1. CYCLOPHOSPHAMIDE [Suspect]
     Indication: BREAST CANCER
  2. TAXOL [Suspect]
     Indication: BREAST CANCER
  3. DOXORUBICIN HCL [Suspect]
     Indication: BREAST CANCER
  4. FLUOROURACIL [Suspect]
     Indication: BREAST CANCER

REACTIONS (1)
  - CEREBRAL ISCHAEMIA [None]
